FAERS Safety Report 4575810-0 (Version None)
Quarter: 2005Q1

REPORT INFORMATION
  Report Type: 
  Country: None (occurrence: None)
  Receive Date: 20050209
  Receipt Date: 20050128
  Transmission Date: 20050727
  Serious: Yes (Hospitalization)
  Sender: FDA-Public Use
  Company Number: 393175

PATIENT
  Age: 74 Year
  Sex: Female

DRUGS (6)
  1. DILATREND [Suspect]
     Indication: ESSENTIAL HYPERTENSION
     Dosage: 37.5MG PER DAY
     Route: 048
  2. ZOCOR [Suspect]
     Indication: HYPERCHOLESTEROLAEMIA
     Dosage: 80MG PER DAY
     Route: 048
     Dates: start: 20041001, end: 20041117
  3. PRAVASTATIN SODIUM [Concomitant]
     Indication: MYOCARDIAL INFARCTION
     Dates: start: 19960715, end: 20041005
  4. ACETYLSALICYLIC ACID [Concomitant]
  5. TRIATEC [Concomitant]
  6. ARELIX [Concomitant]

REACTIONS (6)
  - BLOOD CREATINE PHOSPHOKINASE INCREASED [None]
  - DIFFICULTY IN WALKING [None]
  - DRUG INTERACTION [None]
  - HYPERCHOLESTEROLAEMIA [None]
  - MUSCULAR WEAKNESS [None]
  - RHABDOMYOLYSIS [None]
